FAERS Safety Report 8010125-X (Version None)
Quarter: 2011Q4

REPORT INFORMATION
  Report Type: 
  Country: None (occurrence: None)
  Receive Date: 20111228
  Receipt Date: 20111219
  Transmission Date: 20120403
  Serious: No
  Sender: FDA-Public Use
  Company Number: US-B.I. PHARMACEUTICALS,INC./RIDGEFIELD-2011-BP-28384BP

PATIENT
  Age: 73 Year
  Sex: Female

DRUGS (9)
  1. METOPROLOL SUCCINATE [Concomitant]
     Indication: HYPERTENSION
  2. PANTOPRAZOLE [Concomitant]
     Indication: ABDOMINAL DISCOMFORT
  3. DIOVAN HCT [Concomitant]
     Indication: HYPERTENSION
  4. AMLODIPINE BESYLATE [Concomitant]
     Indication: CARDIAC DISORDER
  5. ALLOPURINOL [Concomitant]
     Indication: GOUT
  6. PRADAXA [Suspect]
     Indication: ATRIAL FIBRILLATION
     Dosage: 300 MG
     Route: 048
     Dates: start: 20110401
  7. SINGULAIR [Concomitant]
     Indication: ASTHMA
  8. SIMVASTATIN [Concomitant]
     Indication: BLOOD CHOLESTEROL INCREASED
  9. AREDS [Concomitant]
     Indication: MACULAR DEGENERATION

REACTIONS (1)
  - HEADACHE [None]
